FAERS Safety Report 14435508 (Version 1)
Quarter: 2018Q1

REPORT INFORMATION
  Report Type: Report from Study
  Country: US (occurrence: US)
  Receive Date: 20180125
  Receipt Date: 20180125
  Transmission Date: 20180509
  Serious: Yes (Hospitalization)
  Sender: FDA-Public Use
  Company Number: US-GILEAD-2018-0317433

PATIENT
  Age: 41 Year
  Sex: Male

DRUGS (2)
  1. AMBRISENTAN [Suspect]
     Active Substance: AMBRISENTAN
     Indication: PRODUCT USED FOR UNKNOWN INDICATION
     Dosage: 5 MG, QD
     Route: 065
     Dates: start: 20171227
  2. ADEMPAS [Concomitant]
     Active Substance: RIOCIGUAT

REACTIONS (4)
  - Joint swelling [Unknown]
  - Ocular icterus [Unknown]
  - Fluid retention [Unknown]
  - Swelling [Unknown]
